FAERS Safety Report 18750009 (Version 3)
Quarter: 2021Q1

REPORT INFORMATION
  Report Type: Spontaneous
  Country: US (occurrence: US)
  Receive Date: 20210118
  Receipt Date: 20210323
  Transmission Date: 20210419
  Serious: Yes (Other)
  Sender: FDA-Public Use
  Company Number: US-CELLTRION INC.-2021US000224

PATIENT

DRUGS (3)
  1. INFLECTRA [Suspect]
     Active Substance: INFLIXIMAB-DYYB
     Indication: CROHN^S DISEASE
     Dosage: FIRST LOADING DOSE WEEK 0, 2, 4
     Route: 065
     Dates: start: 20201107
  2. INFLECTRA [Suspect]
     Active Substance: INFLIXIMAB-DYYB
     Dosage: SECOND LOADING DOSE WEEK 0, 2, 4
     Route: 065
  3. INFLECTRA [Suspect]
     Active Substance: INFLIXIMAB-DYYB
     Dosage: 10 MG/KG (WEEK 0, 2, 4 ? LAST LOADING DOSE)
     Route: 065
     Dates: start: 202012, end: 20201221

REACTIONS (6)
  - Haemorrhage [Unknown]
  - Faecal calprotectin increased [Unknown]
  - Off label use [Unknown]
  - Remission not achieved [Unknown]
  - Therapy non-responder [Unknown]
  - Overdose [Unknown]

NARRATIVE: CASE EVENT DATE: 20201227
